FAERS Safety Report 6321687-2 (Version None)
Quarter: 2009Q3

REPORT INFORMATION
  Report Type: 
  Country: None (occurrence: None)
  Receive Date: 20090819
  Receipt Date: 20090810
  Transmission Date: 20100115
  Serious: Yes (Hospitalization)
  Sender: FDA-Public Use
  Company Number: 09DE001195

PATIENT
  Age: 85 Year
  Sex: Female

DRUGS (6)
  1. VALPROIC ACID [Suspect]
     Indication: MANIA
     Dosage: 300 MG, BID
  2. QUETIAPINE FUMARATE [Concomitant]
  3. NIFEDIPINE [Concomitant]
  4. TORSEMIDE [Concomitant]
  5. LEVOTHYROXINE SODIUM [Concomitant]
  6. ASPIRIN [Concomitant]

REACTIONS (8)
  - ALANINE AMINOTRANSFERASE INCREASED [None]
  - ASPARTATE AMINOTRANSFERASE INCREASED [None]
  - BLOOD CREATININE INCREASED [None]
  - DRUG CLEARANCE DECREASED [None]
  - DRUG HALF-LIFE INCREASED [None]
  - DRUG INTERACTION [None]
  - DRUG LEVEL BELOW THERAPEUTIC [None]
  - MYOPATHY [None]
